FAERS Safety Report 6690251-8 (Version None)
Quarter: 2010Q2

REPORT INFORMATION
  Report Type: 
  Country: None (occurrence: None)
  Receive Date: 20100421
  Receipt Date: 20100409
  Transmission Date: 20101027
  Serious: Yes (Other)
  Sender: FDA-Public Use
  Company Number: US-ROCHE-695676

PATIENT
  Sex: Female

DRUGS (2)
  1. PEGASYS [Suspect]
     Indication: HEPATITIS C
     Dosage: TRIAL TREATMENT, FORM:PREFILLED SYRINGE
     Route: 065
     Dates: start: 20100316
  2. COPEGUS [Suspect]
     Indication: HEPATITIS C
     Dosage: FREQUENCY: DAILY IN DIVIDED DOSES
     Route: 065
     Dates: start: 20100316

REACTIONS (9)
  - ABDOMINAL PAIN [None]
  - ANXIETY [None]
  - BLISTER [None]
  - CONTUSION [None]
  - DIARRHOEA [None]
  - HEADACHE [None]
  - NAUSEA [None]
  - SKIN REACTION [None]
  - STOMATITIS [None]
